FAERS Safety Report 6890072-7 (Version None)
Quarter: 2010Q3

REPORT INFORMATION
  Report Type: 
  Country: None (occurrence: None)
  Receive Date: 20100730
  Receipt Date: 20081003
  Transmission Date: 20110219
  Serious: Yes (Other)
  Sender: FDA-Public Use
  Company Number: US-PFIZER INC-2007034174

PATIENT
  Sex: Female
  Weight: 83.9 kg

DRUGS (7)
  1. LIPITOR [Suspect]
     Indication: BLOOD CHOLESTEROL INCREASED
     Route: 048
  2. LIPITOR [Suspect]
     Indication: HYPERCHOLESTEROLAEMIA
  3. METFORMIN HCL [Concomitant]
  4. LOZOL [Concomitant]
  5. GLIPIZIDE [Concomitant]
  6. TOPROL-XL [Concomitant]
  7. AVANDIA [Concomitant]

REACTIONS (1)
  - HEPATIC ENZYME INCREASED [None]
